FAERS Safety Report 11514553 (Version 1)
Quarter: 2015Q3

REPORT INFORMATION
  Report Type: Spontaneous
  Country: BR (occurrence: BR)
  Receive Date: 20150916
  Receipt Date: 20150916
  Transmission Date: 20151125
  Serious: Yes (Death)
  Sender: FDA-Public Use
  Company Number: BR-BAYER-2015-416248

PATIENT
  Age: 68 Year
  Sex: Female
  Weight: 69 kg

DRUGS (2)
  1. GLIMEPIRIDE. [Concomitant]
     Active Substance: GLIMEPIRIDE
     Dosage: 1 DF, QD
     Route: 048
     Dates: start: 2009, end: 20150827
  2. NEXAVAR [Suspect]
     Active Substance: SORAFENIB
     Indication: HEPATIC CANCER
     Dosage: 400 MG, BID
     Route: 048
     Dates: start: 20150729, end: 20150827

REACTIONS (4)
  - Neoplasm [Fatal]
  - Diarrhoea [Not Recovered/Not Resolved]
  - Hepatic cancer [Fatal]
  - Fatigue [Not Recovered/Not Resolved]

NARRATIVE: CASE EVENT DATE: 20150730
